FAERS Safety Report 25032014 (Version 1)
Quarter: 2025Q1

REPORT INFORMATION
  Report Type: Spontaneous
  Country: US (occurrence: None)
  Receive Date: 20250303
  Receipt Date: 20250303
  Transmission Date: 20250409
  Serious: Yes (Hospitalization)
  Sender: FDA-CTU
  Company Number: None

PATIENT
  Age: 70 Year
  Sex: Male
  Weight: 101.6 kg

DRUGS (4)
  1. METOPROLOL TARTRATE [Suspect]
     Active Substance: METOPROLOL TARTRATE
     Indication: Computerised tomogram
     Route: 048
     Dates: start: 20250227, end: 20250227
  2. NITROGLYCERIN [Suspect]
     Active Substance: NITROGLYCERIN
     Indication: Computerised tomogram
     Route: 060
     Dates: start: 20250227, end: 20250227
  3. sodium chloride PF injection 100 mL IV Once [Concomitant]
     Dates: start: 20250227, end: 20250227
  4. iopamidol 370 mg injection 90 mL IV Once [Concomitant]
     Dates: start: 20250227, end: 20250227

REACTIONS (2)
  - Bradycardia [None]
  - Hypotension [None]

NARRATIVE: CASE EVENT DATE: 20250227
